FAERS Safety Report 4601045-9 (Version None)
Quarter: 2005Q1

REPORT INFORMATION
  Report Type: 
  Country: None (occurrence: None)
  Receive Date: 20050307
  Receipt Date: 20050307
  Transmission Date: 20050727
  Serious: Yes (Hospitalization)
  Sender: FDA-Public Use
  Company Number: None

PATIENT
  Sex: Male
  Weight: 83 kg

DRUGS (2)
  1. CAPECITABINE           ROCHE [Suspect]
     Indication: COLON CANCER METASTATIC
     Dosage: 1500 MG/M2   Q 8H X 6 DOSES    ORAL
     Route: 048
     Dates: start: 20040909, end: 20050224
  2. OXALIPLATIN      SANOFI [Suspect]
     Indication: COLON CANCER METASTATIC
     Dosage: 100 MG/M2   ONCE Q 2 WKS   INTRAVENOU
     Route: 042
     Dates: start: 20040909, end: 20050224

REACTIONS (2)
  - PNEUMONIA [None]
  - WEIGHT DECREASED [None]
